FAERS Safety Report 6930135-0 (Version None)
Quarter: 2010Q3

REPORT INFORMATION
  Report Type: 
  Country: None (occurrence: None)
  Receive Date: 20100813
  Receipt Date: 20100804
  Transmission Date: 20110219
  Serious: Yes (Hospitalization)
  Sender: FDA-Public Use
  Company Number: 2008-04220

PATIENT
  Age: 71 Year
  Sex: Female
  Weight: 30 kg

DRUGS (10)
  1. VELCADE [Suspect]
     Indication: MULTIPLE MYELOMA
     Dosage: 1.4 MG, INTRAVENOUS
     Route: 042
     Dates: start: 20081009, end: 20081021
  2. SULFAMETHOXAZOLE AND TRIMETHOPRIM [Suspect]
     Indication: PRODUCT USED FOR UNKNOWN INDICATION
     Dosage: 100 MG, ORAL
     Route: 048
     Dates: start: 20081009
  3. OXYCONTIN [Suspect]
     Indication: CANCER PAIN
     Dosage: 10 MG, ORAL
     Route: 048
     Dates: start: 20081018, end: 20081023
  4. LANSOPRAZOLE [Concomitant]
  5. CLARITHROMYCIN [Concomitant]
  6. ACETAMINOPHEN [Concomitant]
  7. AMOBAN (ZOPICLONE) [Concomitant]
  8. NOVAMIN (PROCHLORPERAZINE) [Concomitant]
  9. DECADRON [Concomitant]
  10. KYTRIL /01178101/ (GRANISETRON) [Concomitant]

REACTIONS (4)
  - BLOOD AMYLASE INCREASED [None]
  - CONSTIPATION [None]
  - ILEUS [None]
  - NEUTROPHIL COUNT DECREASED [None]
